FAERS Safety Report 9155732 (Version 1)
Quarter: 2013Q1

REPORT INFORMATION
  Report Type: Spontaneous
  Country: AU (occurrence: AU)
  Receive Date: 20130311
  Receipt Date: 20130311
  Transmission Date: 20140127
  Serious: Yes (Other)
  Sender: FDA-Public Use
  Company Number: PHHY2013AU023393

PATIENT
  Age: 74 Year
  Sex: Female

DRUGS (12)
  1. ACLASTA [Suspect]
     Dosage: UNK
     Route: 042
  2. CELEBREX [Concomitant]
     Dosage: UNK
  3. KARVEA [Concomitant]
     Dosage: UNK
  4. MOVOX//FLUVOXAMINE MALEATE [Concomitant]
     Dosage: UNK
  5. MS CONTIN [Concomitant]
     Dosage: UNK
  6. NEXIUM [Concomitant]
     Dosage: UNK
  7. ASPIRIN [Concomitant]
     Dosage: UNK
  8. OVESTIN [Concomitant]
     Dosage: UNK
  9. OXYNORM [Concomitant]
     Dosage: UNK
  10. PANADEINE FORTE [Concomitant]
     Dosage: UNK
  11. UREMIDE [Concomitant]
     Dosage: UNK
  12. VYTORIN [Concomitant]
     Dosage: UNK

REACTIONS (4)
  - Confusional state [Unknown]
  - Diet refusal [Unknown]
  - Hallucination [Unknown]
  - Renal failure acute [Unknown]
